FAERS Safety Report 8782925 (Version 2)
Quarter: 2012Q4

REPORT INFORMATION
  Report Type: 
  Country: GB (occurrence: GB)
  Receive Date: 20120913
  Receipt Date: 20121019
  Transmission Date: 20130627
  Serious: Yes (Other)
  Sender: FDA-Public Use
  Company Number: PHHY2012GB079450

PATIENT
  Age: 85 Year
  Sex: Female

DRUGS (5)
  1. CO-CODAMOL [Suspect]
     Indication: MUSCULOSKELETAL PAIN
     Dosage: 500 mg
     Dates: start: 20120805, end: 20120826
  2. CO-CODAMOL [Suspect]
     Indication: MUSCULOSKELETAL PAIN
     Dosage: 8/500
     Dates: start: 20120805, end: 20120826
  3. CALCIUM [Concomitant]
  4. RAMIPRIL [Concomitant]
  5. WATER [Concomitant]

REACTIONS (3)
  - Visual impairment [Not Recovered/Not Resolved]
  - Withdrawal syndrome [Not Recovered/Not Resolved]
  - Constipation [Not Recovered/Not Resolved]
